FAERS Safety Report 21664785 (Version 1)
Quarter: 2022Q4

REPORT INFORMATION
  Report Type: Spontaneous
  Country: RS (occurrence: RS)
  Receive Date: 20221130
  Receipt Date: 20221130
  Transmission Date: 20230113
  Serious: Yes (Other)
  Sender: FDA-Public Use
  Company Number: RS-009507513-2211SRB008740

PATIENT
  Age: 70 Year
  Sex: Male

DRUGS (1)
  1. KEYTRUDA [Suspect]
     Active Substance: PEMBROLIZUMAB
     Indication: Non-small cell lung cancer
     Dosage: 200 MILLIGRAM, Q3W
     Dates: start: 20180913

REACTIONS (5)
  - Neutropenia [Unknown]
  - Aplasia pure red cell [Unknown]
  - Anaemia [Unknown]
  - Toxicity to various agents [Unknown]
  - Platelet disorder [Unknown]

NARRATIVE: CASE EVENT DATE: 20190601
